FAERS Safety Report 8525270-X (Version None)
Quarter: 2012Q3

REPORT INFORMATION
  Report Type: 
  Country: None (occurrence: None)
  Receive Date: 20120720
  Receipt Date: 20120717
  Transmission Date: 20120928
  Serious: Yes (Hospitalization)
  Sender: FDA-Public Use
  Company Number: PHHY2012IN061766

PATIENT
  Age: 67 Year
  Sex: Female

DRUGS (1)
  1. ZOLEDRONOC ACID [Suspect]
     Dosage: 5MG/100ML
     Route: 042
     Dates: start: 20120329

REACTIONS (7)
  - JOINT CREPITATION [None]
  - PATHOLOGICAL FRACTURE [None]
  - ABASIA [None]
  - METASTASES TO BONE [None]
  - SEPSIS [None]
  - ACUTE ABDOMEN [None]
  - BREAST CANCER [None]
